FAERS Safety Report 10523542 (Version 1)
Quarter: 2014Q4

REPORT INFORMATION
  Report Type: Spontaneous
  Country: US (occurrence: US)
  Receive Date: 20141017
  Receipt Date: 20141017
  Transmission Date: 20150528
  Serious: Yes (Other)
  Sender: FDA-Public Use
  Company Number: US-BEH-2014045539

PATIENT
  Age: 71 Year
  Sex: Female

DRUGS (2)
  1. HUMATE [Suspect]
     Active Substance: HUMAN COAGULATION FACTOR VIII/VON WILLEBRAND FACTOR COMPLEX
     Dosage: 5042 (UNIT NOT REPORTED)
     Route: 042
     Dates: start: 20140911
  2. HUMATE [Suspect]
     Active Substance: HUMAN COAGULATION FACTOR VIII/VON WILLEBRAND FACTOR COMPLEX
     Indication: VON WILLEBRAND^S DISEASE
     Dosage: 5042 (UNIT NOT REPORTED) EVERY 12 HOURS AS NEEDED
     Route: 042
     Dates: start: 20140911

REACTIONS (1)
  - Intra-abdominal haemorrhage [Unknown]

NARRATIVE: CASE EVENT DATE: 20140922
